FAERS Safety Report 4979179-9 (Version None)
Quarter: 2006Q2

REPORT INFORMATION
  Report Type: 
  Country: None (occurrence: None)
  Receive Date: 20060421
  Receipt Date: 20060329
  Transmission Date: 20061013
  Serious: Yes (Other)
  Sender: FDA-Public Use
  Company Number: US-GLAXOSMITHKLINE-A0599549A

PATIENT
  Age: 64 Year
  Sex: Female
  Weight: 67.3 kg

DRUGS (4)
  1. VALTREX [Suspect]
     Route: 048
     Dates: start: 20060305, end: 20060310
  2. WEIGHT LOSS SUPPLEMENT [Suspect]
     Route: 048
     Dates: start: 20060221, end: 20060310
  3. LEXAPRO [Concomitant]
     Indication: DEPRESSION
     Dosage: 20MG PER DAY
     Route: 048
  4. NEXIUM [Concomitant]
     Dosage: 40MG PER DAY
     Route: 048

REACTIONS (3)
  - DRUG INTERACTION [None]
  - SWELLING FACE [None]
  - URTICARIA [None]
